FAERS Safety Report 6814435-0 (Version None)
Quarter: 2010Q3

REPORT INFORMATION
  Report Type: 
  Country: None (occurrence: None)
  Receive Date: 20100702
  Receipt Date: 20100621
  Transmission Date: 20110219
  Serious: Yes (Other)
  Sender: FDA-Public Use
  Company Number: PHEH2010US00594

PATIENT
  Sex: Male

DRUGS (6)
  1. EXJADE [Suspect]
     Indication: SERUM FERRITIN INCREASED
     Dosage: 2500 MG, QD
     Route: 048
     Dates: start: 20091207, end: 20091229
  2. EXJADE [Suspect]
     Dosage: 2000 MG, DAY
     Route: 048
     Dates: start: 20100224, end: 20100316
  3. EXJADE [Suspect]
     Dosage: 1500 MG, DAY
     Route: 048
     Dates: start: 20100319, end: 20100617
  4. DECITABINE [Concomitant]
     Indication: LEUKAEMIA
     Dosage: UNK
     Route: 042
     Dates: start: 20100125, end: 20100419
  5. ZOSYN [Concomitant]
     Dosage: UNK
     Route: 042
     Dates: start: 20100603
  6. VANCOMYCIN [Concomitant]
     Indication: PNEUMONIA
     Dosage: UNK
     Dates: start: 20100603

REACTIONS (2)
  - RENAL FAILURE [None]
  - VENA CAVA THROMBOSIS [None]
